FAERS Safety Report 10305544 (Version 1)
Quarter: 2014Q3

REPORT INFORMATION
  Report Type: Spontaneous
  Country: US (occurrence: US)
  Receive Date: 20140715
  Receipt Date: 20140715
  Transmission Date: 20150326
  Serious: Yes (Other)
  Sender: FDA-Public Use
  Company Number: US-SA-2014SA092506

PATIENT
  Age: 67 Year
  Sex: Male

DRUGS (2)
  1. NASACORT ALLERGY 24HR [Suspect]
     Active Substance: TRIAMCINOLONE ACETONIDE
     Indication: HYPERSENSITIVITY
     Dosage: 120 SPRAY ONCE A DAY
     Route: 045
     Dates: start: 201402, end: 20140708
  2. AFRIN NASAL SPRAY [Concomitant]

REACTIONS (4)
  - Ageusia [Not Recovered/Not Resolved]
  - Dysphonia [Recovered/Resolved]
  - Upper respiratory tract infection [Recovered/Resolved]
  - Anosmia [Recovered/Resolved]
